FAERS Safety Report 13342696 (Version 3)
Quarter: 2017Q4

REPORT INFORMATION
  Report Type: Spontaneous
  Country: GB (occurrence: GB)
  Receive Date: 20170316
  Receipt Date: 20171218
  Transmission Date: 20180320
  Serious: Yes (Disabling, Other)
  Sender: FDA-Public Use
  Company Number: GB-JNJFOC-20170315425

PATIENT
  Age: 67 Year
  Sex: Male

DRUGS (2)
  1. PRADAXA [Suspect]
     Active Substance: DABIGATRAN ETEXILATE MESYLATE
     Indication: PRODUCT USED FOR UNKNOWN INDICATION
     Route: 065
  2. XARELTO [Suspect]
     Active Substance: RIVAROXABAN
     Indication: DEEP VEIN THROMBOSIS
     Route: 048
     Dates: start: 2014, end: 20161113

REACTIONS (18)
  - Limb discomfort [Not Recovered/Not Resolved]
  - Feeling of despair [Unknown]
  - Muscle disorder [Not Recovered/Not Resolved]
  - Arthralgia [Unknown]
  - Penile size reduced [Not Recovered/Not Resolved]
  - Anal injury [Unknown]
  - Influenza like illness [Unknown]
  - Gastrointestinal disorder [Unknown]
  - Gingival bleeding [Recovered/Resolved]
  - Vitreous detachment [Unknown]
  - Cough [Unknown]
  - Depression [Unknown]
  - Arthropathy [Not Recovered/Not Resolved]
  - Sensory disturbance [Unknown]
  - Renal pain [Recovered/Resolved]
  - Condition aggravated [Unknown]
  - Musculoskeletal pain [Not Recovered/Not Resolved]
  - Pain in extremity [Not Recovered/Not Resolved]

NARRATIVE: CASE EVENT DATE: 20170710
